FAERS Safety Report 5533281-1 (Version None)
Quarter: 2007Q4

REPORT INFORMATION
  Report Type: 
  Country: None (occurrence: None)
  Receive Date: 20071130
  Receipt Date: 20071130
  Transmission Date: 20080405
  Serious: Yes (Life-Threatening, Hospitalization)
  Sender: FDA-Public Use
  Company Number: None

PATIENT
  Age: 57 Year
  Sex: Male
  Weight: 95.2554 kg

DRUGS (2)
  1. PAXIL [Suspect]
     Indication: SCHIZOPHRENIA
     Dosage: 40MGS  ONCE A DAY   PO
     Route: 048
     Dates: start: 20000607, end: 20060520
  2. RISPERDAL [Suspect]
     Dosage: 2MGS   TWICE A DAY  PO
     Route: 048
     Dates: start: 20000607, end: 20060520

REACTIONS (7)
  - DIABETES MELLITUS [None]
  - PANCREATITIS [None]
  - PARKINSONISM [None]
  - PSYCHOTIC DISORDER [None]
  - SCHIZOPHRENIA [None]
  - SUICIDAL IDEATION [None]
  - THINKING ABNORMAL [None]
